FAERS Safety Report 4712860-5 (Version None)
Quarter: 2005Q3

REPORT INFORMATION
  Report Type: 
  Country: None (occurrence: None)
  Receive Date: 20050711
  Receipt Date: 20050628
  Transmission Date: 20060218
  Serious: Yes (Hospitalization)
  Sender: FDA-Public Use
  Company Number: 2005093565

PATIENT
  Age: 85 Year
  Sex: Male

DRUGS (1)
  1. FELDENE [Suspect]
     Indication: ARTHRALGIA
     Dosage: (1 IN 1 D), INTRAMUSCULAR
     Route: 030
     Dates: start: 20050427, end: 20050427

REACTIONS (6)
  - BLISTER [None]
  - CHILLS [None]
  - FIXED ERUPTION [None]
  - MALAISE [None]
  - PRURITUS [None]
  - VOMITING [None]
